FAERS Safety Report 18229590 (Version 1)
Quarter: 2020Q3

REPORT INFORMATION
  Report Type: Spontaneous
  Country: US (occurrence: US)
  Receive Date: 20200903
  Receipt Date: 20200903
  Transmission Date: 20201103
  Serious: Yes (Other)
  Sender: FDA-Public Use
  Company Number: US-MYLANLABS-2020M1076224

PATIENT
  Age: 48 Year
  Sex: Male

DRUGS (1)
  1. ACETYLCYSTEINE. [Suspect]
     Active Substance: ACETYLCYSTEINE
     Indication: ANTIINFLAMMATORY THERAPY
     Dosage: 600 MG/12 HOURS FOR 6 DAYS
     Route: 042
     Dates: start: 20200410

REACTIONS (4)
  - C-reactive protein increased [Recovering/Resolving]
  - Off label use [Unknown]
  - Serum ferritin increased [Recovering/Resolving]
  - Rebound effect [Recovering/Resolving]

NARRATIVE: CASE EVENT DATE: 2020
